FAERS Safety Report 21554472 (Version 18)
Quarter: 2024Q4

REPORT INFORMATION
  Report Type: Spontaneous
  Country: US (occurrence: US)
  Receive Date: 20221104
  Receipt Date: 20241203
  Transmission Date: 20250115
  Serious: No
  Sender: PFIZER
  Company Number: US-PFIZER INC-2020287970

PATIENT
  Age: 79 Year
  Sex: Male
  Weight: 68.027 kg

DRUGS (6)
  1. EUCRISA [Suspect]
     Active Substance: CRISABOROLE
     Indication: Psoriasis
     Dosage: 60G TUBE; APPLY TO AFFECTED AREA QD
     Route: 061
  2. EUCRISA [Suspect]
     Active Substance: CRISABOROLE
     Dosage: 2-3X DAILY
     Route: 061
  3. EUCRISA [Suspect]
     Active Substance: CRISABOROLE
     Dosage: APPLY TO AFFECTED AREA DAILY
     Route: 061
  4. EUCRISA [Suspect]
     Active Substance: CRISABOROLE
     Dosage: TO BOTH FEET, EYEBROWS, HAIRLINE 1-3X DAILY
     Route: 061
  5. EUCRISA [Suspect]
     Active Substance: CRISABOROLE
     Dosage: 100 G
     Route: 061
  6. EUCRISA [Suspect]
     Active Substance: CRISABOROLE
     Dosage: APPLY TO BOTH FEET, EYEBROWS, HAIRLINE 2-3 TIMES A DAY

REACTIONS (6)
  - Off label use [Unknown]
  - Skin disorder [Unknown]
  - Rash [Not Recovered/Not Resolved]
  - Psoriasis [Unknown]
  - Eczema [Not Recovered/Not Resolved]
  - Nasopharyngitis [Unknown]
